FAERS Safety Report 24641558 (Version 1)
Quarter: 2024Q4

REPORT INFORMATION
  Report Type: Spontaneous
  Country: JP (occurrence: JP)
  Receive Date: 20241120
  Receipt Date: 20241120
  Transmission Date: 20250114
  Serious: Yes (Other)
  Sender: STRIDES
  Company Number: JP-STRIDES ARCOLAB LIMITED-2024SP014914

PATIENT

DRUGS (1)
  1. TACROLIMUS [Suspect]
     Active Substance: TACROLIMUS
     Indication: Product used for unknown indication
     Dosage: UNK (THE PATIENT^S MOTHER RECEIVED 1.5 MG/DAY)
     Route: 064

REACTIONS (2)
  - Amblyopia [Unknown]
  - Foetal exposure during pregnancy [Unknown]
